FAERS Safety Report 21403366 (Version 1)
Quarter: 2022Q4

REPORT INFORMATION
  Report Type: Spontaneous
  Country: NL (occurrence: NL)
  Receive Date: 20221003
  Receipt Date: 20221003
  Transmission Date: 20230113
  Serious: Yes (Hospitalization, Other)
  Sender: FDA-Public Use
  Company Number: NL-ATLANTIDE PHARMACEUTICALS AG-2022ATL000081

PATIENT
  Age: 31 Year
  Sex: Female

DRUGS (2)
  1. VENLAFAXINE [Suspect]
     Active Substance: VENLAFAXINE HYDROCHLORIDE
     Indication: Depression
     Dosage: 150 MILLIGRAM, QD
     Route: 065
  2. RIVAROXABAN [Concomitant]
     Active Substance: RIVAROXABAN
     Indication: Depression
     Dosage: 20 MILLIGRAM, QD
     Route: 065

REACTIONS (4)
  - Multiple organ dysfunction syndrome [Recovered/Resolved]
  - Intentional overdose [Recovered/Resolved]
  - Serotonin syndrome [Recovering/Resolving]
  - Suicide attempt [Unknown]
